FAERS Safety Report 20057292 (Version 1)
Quarter: 2021Q4

REPORT INFORMATION
  Report Type: Report from Study
  Country: US (occurrence: US)
  Receive Date: 20211111
  Receipt Date: 20211111
  Transmission Date: 20220303
  Serious: Yes (Hospitalization)
  Sender: FDA-Public Use
  Company Number: US-AMGEN-USACT2021173027

PATIENT
  Age: 74 Year
  Sex: Male
  Weight: 89.6 kg

DRUGS (4)
  1. BLINATUMOMAB [Suspect]
     Active Substance: BLINATUMOMAB
     Indication: B precursor type acute leukaemia
     Dosage: 28 MICROGRAM, QD/TOTAL DOSE ADMINISTERED: 684.8 MCG
     Route: 042
     Dates: start: 20210812, end: 20210926
  2. BLINATUMOMAB [Suspect]
     Active Substance: BLINATUMOMAB
     Dosage: 9 MICROGRAM
     Route: 042
     Dates: start: 2021
  3. INOTUZUMAB OZOGAMICIN [Suspect]
     Active Substance: INOTUZUMAB OZOGAMICIN
     Indication: B precursor type acute leukaemia
     Dosage: UNK
     Route: 042
     Dates: start: 20210609, end: 20210721
  4. METHOTREXATE [Suspect]
     Active Substance: METHOTREXATE
     Indication: B precursor type acute leukaemia
     Dosage: 15 MILLIGRAM/TOTAL DOSE ADMINISTERED; 45 MG
     Route: 037
     Dates: start: 20210609

REACTIONS (2)
  - Gait disturbance [Recovered/Resolved]
  - Aphasia [Recovered/Resolved]

NARRATIVE: CASE EVENT DATE: 20210926
